FAERS Safety Report 18358248 (Version 2)
Quarter: 2020Q4

REPORT INFORMATION
  Report Type: Spontaneous
  Country: US (occurrence: US)
  Receive Date: 20201007
  Receipt Date: 20201203
  Transmission Date: 20210114
  Serious: No
  Sender: FDA-Public Use
  Company Number: US-JNJFOC-20200949378

PATIENT
  Age: 63 Year
  Sex: Female
  Weight: 98.52 kg

DRUGS (3)
  1. IBUPROFEN. [Concomitant]
     Active Substance: IBUPROFEN
     Indication: PRODUCT USED FOR UNKNOWN INDICATION
     Dosage: 1 TABLET
     Route: 048
  2. WOMENS ROGAINE UNSCENTED [Suspect]
     Active Substance: MINOXIDIL
     Indication: ALOPECIA AREATA
     Dosage: 1 PUMP NIGHTLY
     Route: 061
     Dates: start: 202003, end: 20200330
  3. WOMENS ROGAINE UNSCENTED [Suspect]
     Active Substance: MINOXIDIL
     Indication: ALOPECIA AREATA
     Dosage: 1 PUMP NIGHTLY
     Route: 061

REACTIONS (4)
  - Product use in unapproved indication [Unknown]
  - Skin exfoliation [Recovered/Resolved]
  - Drug hypersensitivity [Recovered/Resolved]
  - Burning sensation [Recovered/Resolved]

NARRATIVE: CASE EVENT DATE: 202003
